FAERS Safety Report 14687406 (Version 1)
Quarter: 2018Q1

REPORT INFORMATION
  Report Type: Spontaneous
  Country: PL (occurrence: PL)
  Receive Date: 20180328
  Receipt Date: 20180328
  Transmission Date: 20180509
  Serious: Yes (Other)
  Sender: FDA-Public Use
  Company Number: PL-ROCHE-2091649

PATIENT
  Sex: Female

DRUGS (2)
  1. CELLCEPT [Suspect]
     Active Substance: MYCOPHENOLATE MOFETIL\MYCOPHENOLATE MOFETIL HYDROCHLORIDE
     Indication: MYASTHENIA GRAVIS
     Dosage: 1000MG IN THE MORNING, 1000MG IN THE EVENING
     Route: 065
     Dates: start: 2018
  2. ESSENTIALE FORTE [Concomitant]
     Indication: HEPATITIS C
     Route: 048

REACTIONS (16)
  - Headache [Not Recovered/Not Resolved]
  - Nausea [Unknown]
  - Abdominal distension [Unknown]
  - Depression [Not Recovered/Not Resolved]
  - Sinus pain [Not Recovered/Not Resolved]
  - Refusal of treatment by patient [Unknown]
  - Contusion [Not Recovered/Not Resolved]
  - Tremor [Not Recovered/Not Resolved]
  - Hepatic pain [Not Recovered/Not Resolved]
  - Coordination abnormal [Unknown]
  - Peripheral swelling [Unknown]
  - White blood cells urine [Not Recovered/Not Resolved]
  - Mood swings [Not Recovered/Not Resolved]
  - Disturbance in attention [Unknown]
  - Red blood cells urine positive [Not Recovered/Not Resolved]
  - Swelling [Not Recovered/Not Resolved]

NARRATIVE: CASE EVENT DATE: 20180212
